FAERS Safety Report 9034759 (Version 1)
Quarter: 2013Q1

REPORT INFORMATION
  Report Type: Spontaneous
  Country: AU (occurrence: None)
  Receive Date: 20130118
  Receipt Date: 20130118
  Transmission Date: 20140127
  Serious: Yes (Hospitalization, Other)
  Sender: FDA-Public Use
  Company Number: 2008AP001288

PATIENT
  Age: 60 Year
  Sex: Female

DRUGS (6)
  1. TERBINAFINE HYDROCHLORIDE [Suspect]
     Indication: ONYCHOMYCOSIS
     Route: 048
  2. PARACETAMOL (PARACETAMOL) [Concomitant]
  3. IBUPROFEN (IBUPROFEN) [Concomitant]
  4. MEDROXYPROGESTERONE ACETATE (MEDROXYPROGESTERONE ACETATE) [Concomitant]
  5. ESTROGENS CONJUGATED (ESTROGENS CONJUGATED) [Concomitant]
  6. CODEINE (CODEINE) [Concomitant]

REACTIONS (7)
  - Agranulocytosis [None]
  - Mouth ulceration [None]
  - Tongue ulceration [None]
  - Febrile neutropenia [None]
  - Myalgia [None]
  - Malaise [None]
  - Fatigue [None]
